FAERS Safety Report 8849692 (Version 4)
Quarter: 2014Q1

REPORT INFORMATION
  Report Type: Spontaneous
  Country: JP (occurrence: JP)
  Receive Date: 20121019
  Receipt Date: 20140303
  Transmission Date: 20141002
  Serious: Yes (Life-Threatening, Other)
  Sender: FDA-Public Use
  Company Number: PHHY2012JP092317

PATIENT
  Age: 50 Year
  Sex: Male
  Weight: 66 kg

DRUGS (6)
  1. FTY 720 [Suspect]
     Indication: MULTIPLE SCLEROSIS
     Dosage: 0.5 MG, DAILY
     Route: 048
     Dates: start: 20120303, end: 20131214
  2. AMLODIN [Concomitant]
     Indication: HYPERTENSION
     Dosage: 5 MG, UNK
     Route: 048
  3. JZOLOFT [Concomitant]
     Indication: DEPRESSION
     Dosage: 50 MG, UNK
     Route: 048
  4. ZETIA [Concomitant]
     Indication: DYSLIPIDAEMIA
     Dosage: 10 MG, UNK
     Route: 048
  5. BETAFERON [Concomitant]
     Indication: MULTIPLE SCLEROSIS
     Dosage: 8000000 IU, UNK
     Route: 058
     Dates: start: 200701, end: 200904
  6. EPADEL-S [Concomitant]
     Indication: DYSLIPIDAEMIA
     Dosage: 600 MG, UNK
     Route: 048

REACTIONS (5)
  - Oropharyngeal cancer [Not Recovered/Not Resolved]
  - Oropharyngeal pain [Unknown]
  - Throat irritation [Unknown]
  - Nasopharyngeal cancer [Unknown]
  - Metastases to bone [Unknown]
